FAERS Safety Report 4896587-5 (Version None)
Quarter: 2005Q4

REPORT INFORMATION
  Report Type: 
  Country: None (occurrence: None)
  Receive Date: 20051223
  Receipt Date: 20051031
  Transmission Date: 20060501
  Serious: No
  Sender: FDA-Public Use
  Company Number: 05P-163-0316022-00

PATIENT
  Age: 57 Year
  Sex: Female

DRUGS (8)
  1. HUMIRA [Suspect]
     Indication: RHEUMATOID ARTHRITIS
     Dosage: 40 MG, 1 IN 2 WK, SUBCUTANEOUS
     Route: 058
     Dates: start: 20041201
  2. HYDROXYCHLOROQUINE PHOSPHATE [Concomitant]
  3. FOLIC ACID [Concomitant]
  4. TRAZADONE [Concomitant]
  5. LANSOPRAZOLE [Concomitant]
  6. METHOTREXATE [Concomitant]
  7. CRESTOR [Concomitant]
  8. HYDROCODONE BITARTRATE [Concomitant]

REACTIONS (1)
  - INJECTION SITE PAIN [None]
